FAERS Safety Report 15973415 (Version 3)
Quarter: 2020Q2

REPORT INFORMATION
  Report Type: Not Available
  Country: US (occurrence: US)
  Receive Date: 20190216
  Receipt Date: 20200428
  Transmission Date: 20200713
  Serious: Yes (Death, Other)
  Sender: FDA-Public Use
  Company Number: US-AMAG PHARMACEUTICALS, INC.-AMAG201806914

PATIENT
  Age: 0 Year
  Sex: Male
  Weight: .48 kg

DRUGS (1)
  1. MAKENA [Suspect]
     Active Substance: HYDROXYPROGESTERONE CAPROATE
     Indication: FOETAL EXPOSURE DURING PREGNANCY
     Dosage: 250 MG/ML, WEEKLY
     Route: 064
     Dates: start: 20181004, end: 20181011

REACTIONS (2)
  - Premature baby [Fatal]
  - Sepsis neonatal [Fatal]

NARRATIVE: CASE EVENT DATE: 201810
